FAERS Safety Report 6649496-5 (Version None)
Quarter: 2010Q1

REPORT INFORMATION
  Report Type: 
  Country: None (occurrence: None)
  Receive Date: 20100324
  Receipt Date: 20100324
  Transmission Date: 20100710
  Serious: Yes (Other)
  Sender: FDA-Public Use
  Company Number: None

PATIENT
  Age: 20 Month
  Sex: Female
  Weight: 11.3399 kg

DRUGS (2)
  1. VIGAMOX [Suspect]
     Indication: CONJUNCTIVITIS BACTERIAL
     Dosage: 1-2 DROPS BID OPHTHALMIC
     Route: 047
     Dates: start: 20100308, end: 20100311
  2. CEFDINIR [Concomitant]

REACTIONS (1)
  - URTICARIA [None]
